FAERS Safety Report 15719686 (Version 1)
Quarter: 2018Q4

REPORT INFORMATION
  Report Type: Spontaneous
  Country: SE (occurrence: SE)
  Receive Date: 20181213
  Receipt Date: 20181213
  Transmission Date: 20190205
  Serious: Yes (Hospitalization)
  Sender: FDA-Public Use
  Company Number: SE-ELI_LILLY_AND_COMPANY-SE201812004228

PATIENT
  Age: 63 Year
  Sex: Female
  Weight: 73 kg

DRUGS (5)
  1. GEMCITABINE HYDROCHLORIDE. [Suspect]
     Active Substance: GEMCITABINE HYDROCHLORIDE
     Indication: OVARIAN CANCER RECURRENT
     Dosage: 800 MG/M2, CYCLICAL
     Route: 042
     Dates: start: 20150804
  2. AVASTIN [ATORVASTATIN CALCIUM] [Suspect]
     Active Substance: ATORVASTATIN CALCIUM
     Indication: OVARIAN CANCER RECURRENT
     Dosage: 7.5 MG/KG, CYCLICAL
     Route: 065
     Dates: start: 20150804, end: 20150805
  3. ONDANSETRON [Concomitant]
     Active Substance: ONDANSETRON
     Indication: VOMITING
     Dosage: 8 MG, UNKNOWN
     Route: 065
  4. CARBOPLATIN. [Suspect]
     Active Substance: CARBOPLATIN
     Indication: OVARIAN CANCER RECURRENT
     Dosage: UNK UNK, CYCLICAL
     Route: 042
     Dates: start: 20150804
  5. AVASTIN [ATORVASTATIN CALCIUM] [Suspect]
     Active Substance: ATORVASTATIN CALCIUM
     Dosage: 7.5 MG/KG, CYCLICAL
     Route: 065
     Dates: start: 20150804, end: 20150805

REACTIONS (6)
  - Nausea [Recovered/Resolved]
  - Posterior reversible encephalopathy syndrome [Unknown]
  - Confusional state [Recovered/Resolved]
  - Hypertension [Recovered/Resolved]
  - Transient global amnesia [Recovered/Resolved]
  - Headache [Recovered/Resolved]

NARRATIVE: CASE EVENT DATE: 20150804
